FAERS Safety Report 5720815-7 (Version None)
Quarter: 2008Q2

REPORT INFORMATION
  Report Type: 
  Country: None (occurrence: None)
  Receive Date: 20080429
  Receipt Date: 20080423
  Transmission Date: 20081010
  Serious: Yes (Disabling)
  Sender: FDA-Public Use
  Company Number: PHHY2008JP01912

PATIENT
  Age: 70 Year
  Sex: Female

DRUGS (3)
  1. AREDIA [Suspect]
     Indication: BREAST CANCER
     Dosage: 90 MG, QMO
     Route: 042
     Dates: start: 20050101, end: 20060701
  2. ZOMETA [Suspect]
     Indication: BREAST CANCER
     Dosage: 4 MG, QMO
     Route: 042
     Dates: start: 20060701, end: 20061113
  3. BISPHOSPHONATES [Concomitant]
     Indication: METASTASIS
     Dates: start: 20030301

REACTIONS (12)
  - BONE DISORDER [None]
  - BONE LESION EXCISION [None]
  - DENTAL CLEANING [None]
  - GINGIVAL SWELLING [None]
  - HAEMORRHAGE [None]
  - ORAL PAIN [None]
  - OSTEOMYELITIS [None]
  - OSTEONECROSIS [None]
  - PAIN [None]
  - SEQUESTRECTOMY [None]
  - TOOTH EXTRACTION [None]
  - TRISMUS [None]
